FAERS Safety Report 26111450 (Version 1)
Quarter: 2025Q4

REPORT INFORMATION
  Report Type: Spontaneous
  Country: US (occurrence: US)
  Receive Date: 20251202
  Receipt Date: 20251202
  Transmission Date: 20260117
  Serious: Yes (Life-Threatening, Disabling)
  Sender: CSL BEHRING
  Company Number: US-BEH-2025227605

PATIENT
  Age: 49 Year
  Sex: Male

DRUGS (4)
  1. MIRCERA [Suspect]
     Active Substance: METHOXY POLYETHYLENE GLYCOL-EPOETIN BETA
     Indication: Nephrogenic anaemia
     Dosage: 90 ?G, QOW
     Dates: start: 20250521
  2. MIRCERA [Suspect]
     Active Substance: METHOXY POLYETHYLENE GLYCOL-EPOETIN BETA
     Dosage: 75 ?G, QOW
     Dates: start: 20251013, end: 20251110
  3. MIRCERA [Suspect]
     Active Substance: METHOXY POLYETHYLENE GLYCOL-EPOETIN BETA
     Dosage: UNK
     Dates: start: 20251117
  4. VENOFER [Concomitant]
     Active Substance: IRON SUCROSE
     Dosage: 100 MG
     Dates: start: 20250523

REACTIONS (6)
  - Unresponsive to stimuli [Unknown]
  - Agonal respiration [Unknown]
  - Respiratory arrest [Recovered/Resolved]
  - Syncope [Recovered/Resolved]
  - Pulse abnormal [Unknown]
  - Condition aggravated [Unknown]

NARRATIVE: CASE EVENT DATE: 20251117
